FAERS Safety Report 7535200-5 (Version None)
Quarter: 2011Q2

REPORT INFORMATION
  Report Type: 
  Country: None (occurrence: None)
  Receive Date: 20110609
  Receipt Date: 20090409
  Transmission Date: 20111010
  Serious: Yes (Other)
  Sender: FDA-Public Use
  Company Number: PHHY2009AU05194

PATIENT
  Sex: Male

DRUGS (1)
  1. CLOZAPINE [Suspect]

REACTIONS (4)
  - HEPATITIS C [None]
  - NEUTROPENIA [None]
  - BIOPSY BONE MARROW [None]
  - WHITE BLOOD CELL COUNT DECREASED [None]
